FAERS Safety Report 8840161 (Version 1)
Quarter: 2012Q4

REPORT INFORMATION
  Report Type: Report from Study
  Country: FR (occurrence: FR)
  Receive Date: 20121015
  Receipt Date: 20121015
  Transmission Date: 20130627
  Serious: Yes (Hospitalization)
  Sender: FDA-Public Use
  Company Number: FR-ROCHE-1144573

PATIENT
  Age: 57 Year
  Sex: Female

DRUGS (4)
  1. BEVACIZUMAB [Suspect]
     Indication: BREAST CANCER
     Route: 042
     Dates: start: 20110610, end: 20110610
  2. FLUOROURACILE [Suspect]
     Indication: BREAST CANCER
     Route: 042
     Dates: start: 20110610, end: 20110610
  3. FARMORUBICIN [Suspect]
     Indication: BREAST CANCER
     Route: 042
     Dates: start: 20110610, end: 20110610
  4. ENDOXAN [Suspect]
     Indication: BREAST CANCER
     Route: 042
     Dates: start: 20110610, end: 20110610

REACTIONS (1)
  - Febrile bone marrow aplasia [Unknown]
